FAERS Safety Report 5530920-6 (Version None)
Quarter: 2007Q4

REPORT INFORMATION
  Report Type: 
  Country: None (occurrence: None)
  Receive Date: 20071130
  Receipt Date: 20071119
  Transmission Date: 20080405
  Serious: Yes (Other)
  Sender: FDA-Public Use
  Company Number: US-PFIZER INC-2007046253

PATIENT
  Sex: Female

DRUGS (9)
  1. BEXTRA [Suspect]
     Indication: ARTHRITIS
     Dosage: DAILY DOSE:20MG
     Route: 048
     Dates: start: 20031215, end: 20050201
  2. CELEBREX [Concomitant]
     Indication: ARTHRITIS
     Dosage: DAILY DOSE:200MG
     Route: 048
  3. NORVASC [Concomitant]
  4. LOPRESSOR [Concomitant]
  5. PRILOSEC [Concomitant]
  6. SYNTHROID [Concomitant]
  7. TYLENOL [Concomitant]
  8. MOTRIN [Concomitant]
  9. LIDOCAINE [Concomitant]
     Route: 062

REACTIONS (1)
  - STEVENS-JOHNSON SYNDROME [None]
